FAERS Safety Report 4562435-6 (Version None)
Quarter: 2005Q1

REPORT INFORMATION
  Report Type: 
  Country: None (occurrence: None)
  Receive Date: 20050121
  Receipt Date: 20041230
  Transmission Date: 20050727
  Serious: Yes (Hospitalization)
  Sender: FDA-Public Use
  Company Number: A02200403937

PATIENT
  Age: 76 Year
  Sex: Female

DRUGS (4)
  1. STILNOX - (ZOLPIDEM) - TABLET - 10 MG [Suspect]
     Route: 048
     Dates: end: 20040601
  2. ATHYMIL - (MIANSERIN HYDROCHLORIDE) - TABLET [Suspect]
     Route: 048
     Dates: start: 20040601
  3. DEPAMIDE - (VALPROMIDE) - TABLET - 300 MG [Suspect]
     Route: 048
     Dates: start: 20040601, end: 20041206
  4. DEROXAT (PAROXETINE HYDROCHLORIDE) [Suspect]
     Route: 048
     Dates: start: 20040601

REACTIONS (8)
  - ANAEMIA MEGALOBLASTIC [None]
  - DYSPNOEA EXERTIONAL [None]
  - GASTRIC POLYPS [None]
  - GASTRITIS ATROPHIC [None]
  - HAEMOLYSIS [None]
  - HEPATITIS [None]
  - HEPATOCELLULAR DAMAGE [None]
  - PERNICIOUS ANAEMIA [None]
